FAERS Safety Report 8448545-1 (Version None)
Quarter: 2012Q2

REPORT INFORMATION
  Report Type: 
  Country: None (occurrence: None)
  Receive Date: 20120619
  Receipt Date: 20120607
  Transmission Date: 20120825
  Serious: Yes (Hospitalization)
  Sender: FDA-Public Use
  Company Number: US-CELGENEUS-163-21880-12061156

PATIENT
  Sex: Male

DRUGS (5)
  1. POTASSIUM CHLORIDE [Concomitant]
     Route: 065
  2. REVLIMID [Suspect]
     Dosage: 10 MILLIGRAM
     Route: 048
     Dates: start: 20111107
  3. AMLODIPINE BESYLATE [Concomitant]
     Route: 065
  4. DEXAMETHASONE [Concomitant]
     Route: 065
  5. ACYCLOVIR [Concomitant]
     Route: 065

REACTIONS (1)
  - LUNG NEOPLASM [None]
